FAERS Safety Report 6449450-2 (Version None)
Quarter: 2009Q4

REPORT INFORMATION
  Report Type: 
  Country: None (occurrence: None)
  Receive Date: 20091120
  Receipt Date: 20091110
  Transmission Date: 20100525
  Serious: Yes (Hospitalization, Other)
  Sender: FDA-Public Use
  Company Number: PHHY2009NZ30606

PATIENT
  Sex: Female

DRUGS (4)
  1. CLOZARIL [Suspect]
     Indication: SCHIZOPHRENIA
     Dosage: 275 MG AT NIGHT
     Route: 048
     Dates: start: 20001120, end: 20090719
  2. CLOZARIL [Suspect]
     Dosage: UNK
  3. LITHIUM [Concomitant]
     Dosage: 250 MG, BID
     Dates: end: 20090719
  4. ASPIRIN [Concomitant]

REACTIONS (5)
  - ACUTE MYOCARDIAL INFARCTION [None]
  - CARDIO-RESPIRATORY ARREST [None]
  - PNEUMONIA [None]
  - PULMONARY OEDEMA [None]
  - SYNCOPE [None]
